FAERS Safety Report 8391099-9 (Version None)
Quarter: 2012Q2

REPORT INFORMATION
  Report Type: 
  Country: None (occurrence: None)
  Receive Date: 20120529
  Receipt Date: 20120518
  Transmission Date: 20120825
  Serious: Yes (Other)
  Sender: FDA-Public Use
  Company Number: ZA-JNJFOC-20120516244

PATIENT
  Age: 11 Year
  Sex: Female

DRUGS (2)
  1. REVELLEX [Suspect]
     Indication: JUVENILE ARTHRITIS
     Route: 042
  2. REVELLEX [Suspect]
     Route: 042

REACTIONS (5)
  - FLUSHING [None]
  - PRURITUS [None]
  - BODY TEMPERATURE INCREASED [None]
  - WHEEZING [None]
  - ANTIBODY TEST POSITIVE [None]
